FAERS Safety Report 6990384-2 (Version None)
Quarter: 2010Q3

REPORT INFORMATION
  Report Type: 
  Country: None (occurrence: None)
  Receive Date: 20100916
  Receipt Date: 20100621
  Transmission Date: 20110219
  Serious: Yes (Other)
  Sender: FDA-Public Use
  Company Number: GB-PFIZER INC-2010076865

PATIENT
  Age: 56 Year
  Sex: Female

DRUGS (5)
  1. PREGABALIN [Suspect]
     Indication: FACIAL NEURALGIA
     Dosage: UNK
     Route: 048
     Dates: start: 20100412, end: 20100530
  2. ACETYLSALICYLIC ACID [Concomitant]
     Indication: MYOCARDIAL INFARCTION
     Dosage: 75 MG, UNK
     Route: 048
     Dates: start: 20020822
  3. GABAPENTIN [Concomitant]
     Dosage: 800 MG, 3X/DAY
     Route: 048
  4. RAMIPRIL [Concomitant]
     Indication: MYOCARDIAL INFARCTION
     Dosage: 10 MG, UNK
     Route: 048
     Dates: start: 20030715
  5. SIMVASTATIN [Concomitant]
     Indication: MYOCARDIAL INFARCTION
     Dosage: 40 MG, UNK
     Route: 048
     Dates: start: 20020822

REACTIONS (2)
  - ANGINA PECTORIS [None]
  - ANGINA UNSTABLE [None]
